FAERS Safety Report 14824056 (Version 1)
Quarter: 2018Q2

REPORT INFORMATION
  Report Type: Spontaneous
  Country: US (occurrence: US)
  Receive Date: 20180428
  Receipt Date: 20180428
  Transmission Date: 20180711
  Serious: No
  Sender: FDA-Public Use
  Company Number: US-TEVA-2018-US-885944

PATIENT
  Sex: Female

DRUGS (1)
  1. CLONAZEPAM. [Suspect]
     Active Substance: CLONAZEPAM
     Indication: FACIAL SPASM
     Dosage: 2 TABLETS DAILY
     Route: 065

REACTIONS (2)
  - Contraindication to medical treatment [Unknown]
  - Product use in unapproved indication [Unknown]
